FAERS Safety Report 16363546 (Version 1)
Quarter: 2019Q2

REPORT INFORMATION
  Report Type: Spontaneous
  Country: ES (occurrence: ES)
  Receive Date: 20190528
  Receipt Date: 20190528
  Transmission Date: 20190711
  Serious: Yes (Hospitalization, Other)
  Sender: FDA-Public Use
  Company Number: ES-MYLANLABS-2019M1048575

PATIENT
  Age: 88 Year
  Sex: Female

DRUGS (6)
  1. FUROSEMIDE. [Suspect]
     Active Substance: FUROSEMIDE
     Indication: CARDIAC FAILURE
     Dosage: 2 DOSAGE FORM, QD
     Route: 048
     Dates: start: 20180405
  2. OMEPRAZOL                          /00661201/ [Concomitant]
     Active Substance: OMEPRAZOLE
     Indication: BREAST CANCER FEMALE
     Dosage: 1 DOSAGE FORM
     Route: 048
     Dates: start: 20180517
  3. OXCARBAZEPINA [Concomitant]
     Active Substance: OXCARBAZEPINE
     Indication: TRIGEMINAL NEURALGIA
     Dosage: 1 FEMTOGRAM, QD
     Route: 048
     Dates: start: 20131104
  4. DIAZEPAM. [Concomitant]
     Active Substance: DIAZEPAM
     Indication: ANXIETY
     Dosage: 1 DOSAGE FORM, BID
     Route: 048
     Dates: start: 20180410
  5. ATROVENT [Concomitant]
     Active Substance: IPRATROPIUM BROMIDE
     Indication: CARDIAC FAILURE
     Dosage: 40 MICROGRAM, Q6H
     Route: 055
     Dates: start: 20170322
  6. FORMODUAL [Concomitant]
     Indication: ASTHMA
     Dosage: 2 PUFF C/12 HORAS
     Route: 055
     Dates: start: 20180516

REACTIONS (3)
  - Acute kidney injury [Recovered/Resolved]
  - Medication error [Unknown]
  - Overdose [Recovered/Resolved]

NARRATIVE: CASE EVENT DATE: 20180618
